FAERS Safety Report 11939453 (Version 3)
Quarter: 2016Q1

REPORT INFORMATION
  Report Type: Spontaneous
  Country: JP (occurrence: JP)
  Receive Date: 20160122
  Receipt Date: 20160218
  Transmission Date: 20160526
  Serious: Yes (Other)
  Sender: FDA-Public Use
  Company Number: JP-ELI_LILLY_AND_COMPANY-JP201601006770

PATIENT
  Age: 34 Year
  Sex: Female

DRUGS (3)
  1. REMERON [Concomitant]
     Active Substance: MIRTAZAPINE
     Dosage: UNK
     Route: 048
  2. CYMBALTA [Suspect]
     Active Substance: DULOXETINE HYDROCHLORIDE
     Indication: DEPRESSION
     Dosage: 20 MG, QD
     Route: 048
     Dates: start: 20150428, end: 20150505
  3. LENDORMIN [Concomitant]
     Active Substance: BROTIZOLAM
     Dosage: UNK
     Route: 048
     Dates: start: 20150414

REACTIONS (2)
  - Loss of consciousness [Unknown]
  - Seizure [Recovered/Resolved]

NARRATIVE: CASE EVENT DATE: 20150505
